FAERS Safety Report 4687458-8 (Version None)
Quarter: 2005Q2

REPORT INFORMATION
  Report Type: 
  Country: None (occurrence: None)
  Receive Date: 20050609
  Receipt Date: 20050609
  Transmission Date: 20051028
  Serious: Yes (Death)
  Sender: FDA-Public Use
  Company Number: None

PATIENT
  Age: 21 Year
  Sex: Male
  Weight: 90.7194 kg

DRUGS (2)
  1. FLUOXETINE [Suspect]
     Indication: DEPRESSION
     Dosage: 60 MG   DAILY    ORAL
     Route: 048
     Dates: start: 19981115, end: 20050529
  2. IMODIUM AD [Suspect]
     Indication: DIARRHOEA
     Dosage: 2MG CAPLET    TWICE DURING W    ORAL
     Route: 048
     Dates: start: 20050524, end: 20050528

REACTIONS (2)
  - DIARRHOEA [None]
  - FALL [None]
